FAERS Safety Report 8610878-3 (Version None)
Quarter: 2012Q3

REPORT INFORMATION
  Report Type: 
  Country: None (occurrence: None)
  Receive Date: 20120808
  Receipt Date: 20120724
  Transmission Date: 20120928
  Serious: Yes (Death, Other)
  Sender: FDA-Public Use
  Company Number: FK201202152

PATIENT
  Age: 73 Year
  Sex: Female

DRUGS (4)
  1. FLUOROURACIL [Concomitant]
  2. OXALIPLATIN [Suspect]
     Indication: COLON CANCER
     Dosage: 85 MG/M2
  3. BEVACIZUMAB (BEVACIZUMAB) [Concomitant]
  4. LEUCOVORIN CALCIUM [Concomitant]

REACTIONS (4)
  - ORGANISING PNEUMONIA [None]
  - HYPOXIA [None]
  - PERIPHERAL SENSORY NEUROPATHY [None]
  - RESPIRATORY FAILURE [None]
